FAERS Safety Report 4719460-1 (Version None)
Quarter: 2005Q3

REPORT INFORMATION
  Report Type: 
  Country: None (occurrence: None)
  Receive Date: 20050719
  Receipt Date: 20050630
  Transmission Date: 20060218
  Serious: Yes (Hospitalization)
  Sender: FDA-Public Use
  Company Number: USA050599091

PATIENT
  Age: 59 Year
  Sex: Female

DRUGS (5)
  1. FORTEO [Suspect]
     Indication: OSTEOPOROSIS
     Dosage: 20 UG/1 DAY
     Dates: start: 20041001, end: 20050526
  2. SYNTHROID [Concomitant]
  3. PROVIGIL [Concomitant]
  4. LAMICTAL [Concomitant]
  5. ADALAT (NIFEDIPINE PA) [Concomitant]

REACTIONS (7)
  - CHEST DISCOMFORT [None]
  - DISCOMFORT [None]
  - DYSPNOEA [None]
  - INFLUENZA [None]
  - MUSCLE SPASMS [None]
  - NON-CARDIAC CHEST PAIN [None]
  - PHARMACEUTICAL PRODUCT COMPLAINT [None]
